FAERS Safety Report 4607322-X (Version None)
Quarter: 2005Q1

REPORT INFORMATION
  Report Type: 
  Country: None (occurrence: None)
  Receive Date: 20050310
  Receipt Date: 20050225
  Transmission Date: 20050727
  Serious: Yes (Hospitalization)
  Sender: FDA-Public Use
  Company Number: 212837

PATIENT
  Age: 73 Year
  Sex: Male

DRUGS (8)
  1. BEVACIZUMAB OR PLACEBO (BEVACIZUMAB OR PLACEBO) PWDR + COLVENT, INFUSI [Suspect]
     Indication: CLEAR CELL CARCINOMA OF THE KIDNEY
     Dosage: 10 MG/KG, Q2W; INTRAVENOUS
     Route: 042
     Dates: start: 20050131
  2. INTERFERON ALFA (INTERFERON ALFA) [Suspect]
     Indication: RENAL CELL CARCINOMA STAGE UNSPECIFIED
     Dosage: UNK, 3/WEEK; SUBCUTANEOUS
     Route: 058
     Dates: start: 20050131
  3. AMLODIPINE BESYLATE [Concomitant]
  4. LACTULOSE [Concomitant]
  5. ALLOPURINOL [Concomitant]
  6. TIMOLOL (TIMOLOL MALEATE) [Concomitant]
  7. HYDROCHLOROTHIAZIDE [Concomitant]
  8. OLMESARTAN (OLMESARTAN MEDOXOMIL) [Concomitant]

REACTIONS (1)
  - DEPRESSION [None]
